FAERS Safety Report 12830548 (Version 1)
Quarter: 2016Q4

REPORT INFORMATION
  Report Type: Spontaneous
  Country: US (occurrence: US)
  Receive Date: 20161007
  Receipt Date: 20161007
  Transmission Date: 20170207
  Serious: No
  Sender: FDA-Public Use
  Company Number: US-SA-2016SA152702

PATIENT
  Age: 41 Year
  Sex: Female

DRUGS (19)
  1. AUBAGIO [Suspect]
     Active Substance: TERIFLUNOMIDE
     Indication: MULTIPLE SCLEROSIS
     Route: 048
     Dates: start: 20151010, end: 201607
  2. GABAPENTIN. [Concomitant]
     Active Substance: GABAPENTIN
  3. HYDROCODONE BITARTRATE AND ACETAMINOPHEN [Concomitant]
     Active Substance: ACETAMINOPHEN\HYDROCODONE BITARTRATE
  4. AMANTADINE [Concomitant]
     Active Substance: AMANTADINE
  5. VESICARE [Concomitant]
     Active Substance: SOLIFENACIN SUCCINATE
  6. AMITRIPTYLIN [Concomitant]
     Active Substance: AMITRIPTYLINE
  7. LISINOPRIL. [Concomitant]
     Active Substance: LISINOPRIL
  8. PHENAZOPYRIDINE. [Concomitant]
     Active Substance: PHENAZOPYRIDINE
  9. CEFADROXIL. [Concomitant]
     Active Substance: CEFADROXIL
  10. DETROL LA [Concomitant]
     Active Substance: TOLTERODINE TARTRATE
  11. NITROFURANTOIN. [Concomitant]
     Active Substance: NITROFURANTOIN
  12. AUBAGIO [Suspect]
     Active Substance: TERIFLUNOMIDE
     Indication: MULTIPLE SCLEROSIS
     Route: 048
     Dates: start: 2016
  13. PROVIGIL [Concomitant]
     Active Substance: MODAFINIL
  14. METHYLPRED [Concomitant]
     Active Substance: METHYLPREDNISOLONE
  15. SUMATRIPTAN. [Concomitant]
     Active Substance: SUMATRIPTAN
  16. PREDNISONE. [Concomitant]
     Active Substance: PREDNISONE
  17. TOPIRAMATE. [Concomitant]
     Active Substance: TOPIRAMATE
  18. LORAZEPAM. [Concomitant]
     Active Substance: LORAZEPAM
  19. TOPAMAX [Concomitant]
     Active Substance: TOPIRAMATE

REACTIONS (1)
  - Memory impairment [Unknown]
